FAERS Safety Report 7051574-6 (Version None)
Quarter: 2010Q4

REPORT INFORMATION
  Report Type: 
  Country: None (occurrence: None)
  Receive Date: 20101018
  Receipt Date: 20101018
  Transmission Date: 20110411
  Serious: Yes (Hospitalization, Disabling, Other)
  Sender: FDA-Public Use
  Company Number: None

PATIENT
  Age: 63 Year
  Sex: Female
  Weight: 65.5 kg

DRUGS (2)
  1. FOSAMAX [Suspect]
     Indication: OSTEOPENIA
     Dosage: FOSAMAX 10 MG DAILY ORAL
     Route: 048
     Dates: start: 19960101, end: 20060101
  2. FOSAMAX [Suspect]
     Dosage: 70 MG WEEKLY ORAL
     Route: 048

REACTIONS (6)
  - ARTHRALGIA [None]
  - DEVICE COMPONENT ISSUE [None]
  - FEMUR FRACTURE [None]
  - IMPAIRED HEALING [None]
  - MEDICAL DEVICE COMPLICATION [None]
  - STRESS FRACTURE [None]
